FAERS Safety Report 20557505 (Version 1)
Quarter: 2022Q1

REPORT INFORMATION
  Report Type: Spontaneous
  Country: ES (occurrence: ES)
  Receive Date: 20220307
  Receipt Date: 20220307
  Transmission Date: 20220424
  Serious: Yes (Other)
  Sender: FDA-Public Use
  Company Number: ES-002147023-NVSC2022ES048312

PATIENT

DRUGS (1)
  1. XOLAIR [Suspect]
     Active Substance: OMALIZUMAB
     Indication: Urticaria chronic
     Dosage: 300 MG
     Route: 065

REACTIONS (5)
  - Feeling hot [Unknown]
  - Erythema [Unknown]
  - Pain [Unknown]
  - Erectile dysfunction [Unknown]
  - Injection site reaction [Unknown]
